FAERS Safety Report 17487824 (Version 2)
Quarter: 2020Q1

REPORT INFORMATION
  Report Type: Spontaneous
  Country: PT (occurrence: PT)
  Receive Date: 20200303
  Receipt Date: 20200324
  Transmission Date: 20200409
  Serious: Yes (Death, Hospitalization)
  Sender: FDA-Public Use
  Company Number: PT-MYLANLABS-2020M1021675

PATIENT
  Age: 62 Year
  Sex: Male

DRUGS (3)
  1. EVEROLIMUS. [Suspect]
     Active Substance: EVEROLIMUS
     Indication: IMMUNOSUPPRESSANT DRUG THERAPY
     Dosage: VIA ELUTING STENT
     Route: 065
  2. PREDNISOLONE. [Suspect]
     Active Substance: PREDNISOLONE
     Indication: STEVENS-JOHNSON SYNDROME
     Dosage: 80 MILLIGRAM, QD
     Route: 065
  3. ALLOPURINOL. [Suspect]
     Active Substance: ALLOPURINOL
     Indication: PRODUCT USED FOR UNKNOWN INDICATION
     Dosage: UNK
     Route: 065

REACTIONS (13)
  - Coronary artery aneurysm [Fatal]
  - Intracardiac thrombus [Fatal]
  - Nervous system disorder [Fatal]
  - Staphylococcal bacteraemia [Fatal]
  - Infective aneurysm [Fatal]
  - Respiratory disorder [Fatal]
  - Mitral valve incompetence [Fatal]
  - Ventricle rupture [Fatal]
  - Pericardial effusion [Fatal]
  - Cardiac pseudoaneurysm [Fatal]
  - Sepsis [Fatal]
  - Ventricular hypokinesia [Fatal]
  - Stevens-Johnson syndrome [Recovering/Resolving]
